FAERS Safety Report 15558534 (Version 1)
Quarter: 2018Q4

REPORT INFORMATION
  Report Type: Report from Study
  Country: None (occurrence: CO)
  Receive Date: 20181028
  Receipt Date: 20181028
  Transmission Date: 20190205
  Serious: Yes (Other)
  Sender: FDA-Public Use
  Company Number: CO-ABBVIE-18K-036-2535705-00

PATIENT
  Age: 74 Year
  Sex: Male
  Weight: 50 kg

DRUGS (2)
  1. HUMIRA [Suspect]
     Active Substance: ADALIMUMAB
     Indication: PSORIATIC ARTHROPATHY
     Route: 058
     Dates: start: 20090821
  2. HUMIRA [Suspect]
     Active Substance: ADALIMUMAB
     Indication: PSORIATIC ARTHROPATHY
     Dosage: HUMIRA AC
     Route: 058
     Dates: end: 20181002

REACTIONS (6)
  - Decreased appetite [Recovering/Resolving]
  - Inguinal hernia [Recovering/Resolving]
  - Productive cough [Recovering/Resolving]
  - Muscular weakness [Recovering/Resolving]
  - Malaise [Recovering/Resolving]
  - General symptom [Unknown]

NARRATIVE: CASE EVENT DATE: 201603
